FAERS Safety Report 11864051 (Version 4)
Quarter: 2017Q1

REPORT INFORMATION
  Report Type: Report from Study
  Country: None (occurrence: DE)
  Receive Date: 20151223
  Receipt Date: 20170305
  Transmission Date: 20170428
  Serious: Yes (Hospitalization, Other)
  Sender: FDA-Public Use
  Company Number: DE-ABBVIE-15K-062-1498361-00

PATIENT
  Age: 19 Year
  Sex: Female
  Weight: 54 kg

DRUGS (1)
  1. HUMIRA [Suspect]
     Active Substance: ADALIMUMAB
     Indication: CROHN^S DISEASE
     Route: 058
     Dates: start: 20150423, end: 201511

REACTIONS (17)
  - Skin burning sensation [Unknown]
  - Scar [Recovered/Resolved with Sequelae]
  - Rash [Not Recovered/Not Resolved]
  - Dermatitis [Recovered/Resolved]
  - Deformity [Not Recovered/Not Resolved]
  - Rhinitis [Recovering/Resolving]
  - Pain [Unknown]
  - Nasopharyngitis [Recovering/Resolving]
  - Dry eye [Unknown]
  - Pain of skin [Recovered/Resolved]
  - Keloid scar [Not Recovered/Not Resolved]
  - Acne conglobata [Not Recovered/Not Resolved]
  - Skin disorder [Not Recovered/Not Resolved]
  - Actinomycosis [Recovering/Resolving]
  - Dry skin [Unknown]
  - Epistaxis [Unknown]
  - Skin tightness [Not Recovered/Not Resolved]

NARRATIVE: CASE EVENT DATE: 20151023
